FAERS Safety Report 6965251-0 (Version None)
Quarter: 2010Q3

REPORT INFORMATION
  Report Type: 
  Country: None (occurrence: None)
  Receive Date: 20100903
  Receipt Date: 20100831
  Transmission Date: 20110219
  Serious: Yes (Death, Hospitalization)
  Sender: FDA-Public Use
  Company Number: PHHY2010TW12704

PATIENT
  Sex: Male

DRUGS (1)
  1. GLEEVEC [Suspect]
     Indication: GASTROINTESTINAL STROMAL TUMOUR
     Dosage: 400 MG, UNK
     Route: 048
     Dates: start: 20051130, end: 20100528

REACTIONS (5)
  - ALTERED STATE OF CONSCIOUSNESS [None]
  - DEATH [None]
  - DECREASED APPETITE [None]
  - ORGAN FAILURE [None]
  - WEIGHT DECREASED [None]
